FAERS Safety Report 8443563-1 (Version None)
Quarter: 2012Q2

REPORT INFORMATION
  Report Type: 
  Country: None (occurrence: None)
  Receive Date: 20120605
  Receipt Date: 20120521
  Transmission Date: 20120825
  Serious: Yes (Hospitalization)
  Sender: FDA-Public Use
  Company Number: ACO_30436-2012

PATIENT
  Age: 53 Year
  Sex: Female

DRUGS (10)
  1. BISOPROLOL FUMARATE [Concomitant]
  2. MORPHINE SULFATE INJ [Concomitant]
  3. IBUPROFEN [Concomitant]
  4. BACLOFEN [Concomitant]
  5. GABAPENTIN [Concomitant]
  6. TORSEMIDE [Concomitant]
  7. AMITRIPTYLINE HCL [Concomitant]
  8. OMEPRAZOLE [Concomitant]
  9. FAMPRIDINE-SR (FAMPRIDINE) TABLET [Suspect]
     Indication: MULTIPLE SCLEROSIS
     Dosage: 10 MG, BID, ORAL
     Route: 048
     Dates: start: 20120518, end: 20120518
  10. LISINOPRIL [Concomitant]

REACTIONS (3)
  - VOMITING [None]
  - SOMNOLENCE [None]
  - COMA [None]
